FAERS Safety Report 15029523 (Version 1)
Quarter: 2018Q2

REPORT INFORMATION
  Report Type: Spontaneous
  Country: US (occurrence: US)
  Receive Date: 20180529
  Receipt Date: 20180529
  Transmission Date: 20180711
  Serious: No
  Sender: FDA-Public Use
  Company Number: None

PATIENT
  Sex: Female

DRUGS (1)
  1. ZOLADEX [Suspect]
     Active Substance: GOSERELIN ACETATE
     Indication: ENDOMETRIOSIS
     Dosage: 1 IMPLANT EVERY 28 DAYS SUBCUTANEOUSLY
     Route: 058
     Dates: start: 20171212

REACTIONS (3)
  - Weight increased [None]
  - Arthralgia [None]
  - Amnesia [None]
